FAERS Safety Report 21618190 (Version 1)
Quarter: 2022Q4

REPORT INFORMATION
  Report Type: Spontaneous
  Country: AT (occurrence: AT)
  Receive Date: 20221119
  Receipt Date: 20221119
  Transmission Date: 20230112
  Serious: Yes (Other)
  Sender: FDA-Public Use
  Company Number: AT-Accord-284781

PATIENT
  Age: 69 Year
  Sex: Male

DRUGS (3)
  1. MELPHALAN [Suspect]
     Active Substance: MELPHALAN
     Indication: Product used for unknown indication
     Dosage: UNK
     Route: 065
     Dates: end: 201903
  2. BORTEZOMIB [Suspect]
     Active Substance: BORTEZOMIB
     Indication: Product used for unknown indication
     Dosage: UNK(RECEIVED 6 CYCLES)
     Route: 065
     Dates: end: 201903
  3. PREDNISOLONE [Suspect]
     Active Substance: PREDNISOLONE
     Indication: Product used for unknown indication
     Dosage: UNK(RECEIVED 6 CYCLES)
     Route: 065
     Dates: end: 201903

REACTIONS (3)
  - Cytopenia [Recovered/Resolved]
  - Polyneuropathy [Recovering/Resolving]
  - Treatment failure [Unknown]
